FAERS Safety Report 4934860-2 (Version None)
Quarter: 2006Q1

REPORT INFORMATION
  Report Type: 
  Country: None (occurrence: None)
  Receive Date: 20060302
  Receipt Date: 20060217
  Transmission Date: 20060701
  Serious: Yes (Hospitalization)
  Sender: FDA-Public Use
  Company Number: S06-USA-00570-01

PATIENT
  Sex: Female

DRUGS (3)
  1. LEXAPRO [Suspect]
     Indication: DEPRESSION
  2. BETA-BLOCKER [Concomitant]
  3. LASIX [Concomitant]

REACTIONS (2)
  - DEPRESSION [None]
  - HYPONATRAEMIA [None]
